FAERS Safety Report 18633741 (Version 1)
Quarter: 2020Q4

REPORT INFORMATION
  Report Type: Spontaneous
  Country: US (occurrence: US)
  Receive Date: 20201218
  Receipt Date: 20201218
  Transmission Date: 20210114
  Serious: Yes (Other)
  Sender: FDA-Public Use
  Company Number: US-AMERICAN REGENT INC-2020002640

PATIENT
  Age: 9 Month
  Sex: Female

DRUGS (15)
  1. FENTANYL. [Suspect]
     Active Substance: FENTANYL
     Indication: SEDATION
     Dosage: 1 MCG/KG/HOUR (IN OR)
     Route: 042
  2. FENTANYL. [Suspect]
     Active Substance: FENTANYL
     Dosage: 3 MCG/KG/DOSE
  3. NOREPINEPHRINE. [Concomitant]
     Active Substance: NOREPINEPHRINE
     Indication: PROCEDURAL HYPOTENSION
     Dosage: UNK, WEANED OFF AS THE CASE PROGRESSED
     Route: 042
  4. DEXMEDETOMIDINE HYDROCHLORIDE INJECTION (0517-0995-25) [Suspect]
     Active Substance: DEXMEDETOMIDINE HYDROCHLORIDE
     Dosage: 1 MCG/KG/HR, CONTINUOUS
     Route: 042
  5. FENTANYL. [Suspect]
     Active Substance: FENTANYL
     Dosage: 3 MCG/KG/HOUR (PRIOR TO TRANSFER TO PICU THROUGH POST-OP DAY 2)
     Route: 042
  6. CISATRACURIUM. [Concomitant]
     Active Substance: CISATRACURIUM
     Dosage: 10 MCG/KG/MIN
     Route: 042
  7. TACROLIMUS. [Suspect]
     Active Substance: TACROLIMUS
     Indication: PRODUCT USED FOR UNKNOWN INDICATION
     Dosage: UNK
     Route: 065
  8. CISATRACURIUM. [Concomitant]
     Active Substance: CISATRACURIUM
     Dosage: 10 MCG/KG/MIN
     Route: 042
  9. DEXMEDETOMIDINE HYDROCHLORIDE INJECTION (0517-0995-25) [Suspect]
     Active Substance: DEXMEDETOMIDINE HYDROCHLORIDE
     Indication: SEDATION
     Dosage: 0.08 MCG/KG
     Route: 040
  10. EPINEPHRINE INJECTION, USP (0517-1071-01) [Concomitant]
     Active Substance: EPINEPHRINE
     Indication: PROCEDURAL HYPOTENSION
     Dosage: UNK, WEANED OFF AS THE CASE PROGRESSED
     Route: 042
  11. CISATRACURIUM. [Concomitant]
     Active Substance: CISATRACURIUM
     Indication: PARALYSIS
     Dosage: 6 MCG/KG/MIN
     Route: 042
  12. CISATRACURIUM. [Concomitant]
     Active Substance: CISATRACURIUM
     Dosage: 8.5 MCG/KG/MIN
     Route: 042
  13. PLASMALYTE [Concomitant]
     Active Substance: ELECTROLYTES NOS
     Indication: HYPOTENSION
     Dosage: 40 MILLILITRE PER KILOGRAM
     Route: 040
  14. MIDAZOLAM. [Concomitant]
     Active Substance: MIDAZOLAM
     Indication: AGITATION
     Dosage: 0.05 MG/KG/DOSE
     Route: 040
  15. FENTANYL. [Suspect]
     Active Substance: FENTANYL
     Indication: AGITATION
     Dosage: 2 MCG/KG/HOUR (IN OR)
     Route: 042

REACTIONS (3)
  - Bradycardia [Recovered/Resolved]
  - Sinus arrest [Recovered/Resolved]
  - Product use issue [Unknown]
